FAERS Safety Report 7587647-9 (Version None)
Quarter: 2011Q3

REPORT INFORMATION
  Report Type: 
  Country: None (occurrence: None)
  Receive Date: 20110704
  Receipt Date: 20110627
  Transmission Date: 20111222
  Serious: Yes (Death, Other)
  Sender: FDA-Public Use
  Company Number: PHHY2011DE58500

PATIENT
  Sex: Female
  Weight: 79 kg

DRUGS (5)
  1. CENTRALLY ACTING ADRENERGIC AGENTS [Concomitant]
  2. DIOVAN HCT [Suspect]
     Indication: HYPERTENSION
     Dosage: VALSARTAN 160MG AND HYDROCHLOROTHIAZIDE 12.5MG/DAY
     Route: 048
     Dates: start: 20040301
  3. METOPROLOL TARTRATE [Concomitant]
     Dosage: 90 MG/ DAY
     Route: 048
     Dates: start: 20070701
  4. BAYMYCARD [Concomitant]
     Dosage: 5 MG/ DAY
     Route: 048
     Dates: start: 19980201
  5. EFEROX [Concomitant]
     Dosage: 80 UG/ DAY
     Route: 048
     Dates: start: 20040901

REACTIONS (9)
  - DYSPNOEA [None]
  - LEFT VENTRICULAR HYPERTROPHY [None]
  - CARDIAC ARREST [None]
  - MYOCARDIAL INFARCTION [None]
  - RENAL FAILURE [None]
  - ATRIOVENTRICULAR BLOCK [None]
  - ANGINA PECTORIS [None]
  - VENTRICULAR FIBRILLATION [None]
  - ELECTROCARDIOGRAM QRS COMPLEX PROLONGED [None]
